FAERS Safety Report 7023162-9 (Version None)
Quarter: 2010Q3

REPORT INFORMATION
  Report Type: 
  Country: None (occurrence: None)
  Receive Date: 20100930
  Receipt Date: 20100927
  Transmission Date: 20110219
  Serious: Yes (Life-Threatening)
  Sender: FDA-Public Use
  Company Number: NL-ELI_LILLY_AND_COMPANY-NL201009007394

PATIENT
  Sex: Female

DRUGS (9)
  1. SOMATROPIN [Suspect]
     Indication: GROWTH HORMONE DEFICIENCY
     Dosage: 0.3 MG, UNKNOWN
     Route: 058
  2. NIFEDIPINE [Concomitant]
     Indication: HYPERTENSION
  3. RAMIPRIL [Concomitant]
     Indication: HYPERTENSION
  4. ASPIRIN [Concomitant]
     Indication: CARDIOVASCULAR DISORDER
     Dosage: UNK, UNK
  5. ALENDRONATE SODIUM [Concomitant]
     Indication: OSTEOPOROSIS
     Dosage: UNK, UNK
  6. HYDROCORTISONE [Concomitant]
     Indication: ADRENAL INSUFFICIENCY
  7. LEVOTHYROXINE SODIUM [Concomitant]
     Indication: SECONDARY HYPOTHYROIDISM
  8. METHOTREXATE [Concomitant]
     Indication: RHEUMATOID ARTHRITIS
  9. ADALIMUMAB [Concomitant]
     Indication: RHEUMATOID ARTHRITIS

REACTIONS (1)
  - ADDISON'S DISEASE [None]
